FAERS Safety Report 9435916 (Version 1)
Quarter: 2013Q3

REPORT INFORMATION
  Report Type: Report from Study
  Country: FR (occurrence: BE)
  Receive Date: 20130801
  Receipt Date: 20130801
  Transmission Date: 20140515
  Serious: Yes (Death, Hospitalization)
  Sender: FDA-Public Use
  Company Number: BE-FRI-1000044745

PATIENT
  Age: 60 Year
  Sex: Female
  Weight: 77.6 kg

DRUGS (26)
  1. AVELOX [Concomitant]
     Indication: DIABETIC FOOT
     Dates: start: 20130308, end: 20130326
  2. AVELOX [Concomitant]
     Indication: INFECTION
  3. CORUNO [Concomitant]
     Indication: CORONARY ARTERY DISEASE
     Dates: start: 20130308, end: 20130412
  4. COVERSYL [Concomitant]
     Indication: HYPERTENSION
     Dates: start: 20130308, end: 20130310
  5. EMCONCOR [Concomitant]
     Indication: TACHYCARDIA
     Dates: start: 20130325, end: 20130412
  6. GLUCOPHAGE [Concomitant]
     Dates: start: 20130308, end: 20130310
  7. MARCOUMAR [Concomitant]
     Indication: PROPHYLAXIS
     Dates: start: 20130308, end: 20130423
  8. SIMVASTATINE SANDOZ [Concomitant]
     Indication: HYPERCHOLESTEROLAEMIA
     Dates: start: 20130308, end: 20130412
  9. KONAKION [Concomitant]
     Indication: INTERNATIONAL NORMALISED RATIO ABNORMAL
     Dosage: 10 MG/ML
     Dates: start: 20130402, end: 20130402
  10. TAZOCIN [Concomitant]
     Indication: BRONCHOPNEUMONIA
     Dates: start: 20130331, end: 20130415
  11. TIBERAL [Concomitant]
     Indication: BRONCHOPNEUMONIA
     Dates: start: 20130330, end: 20130415
  12. LITICAN [Concomitant]
     Indication: PROPHYLAXIS
  13. ASPEGIC [Concomitant]
     Indication: CEREBROVASCULAR ACCIDENT
     Dates: start: 20130308, end: 20130330
  14. AUGMENTIN [Concomitant]
     Indication: DIABETIC FOOT
     Dates: start: 20130312, end: 20130331
  15. AUGMENTIN [Concomitant]
     Indication: INFECTION
  16. CLEXANE [Concomitant]
     Indication: THROMBOSIS PROPHYLAXIS
     Dates: start: 20130325, end: 20130330
  17. PARACETAMOL [Concomitant]
     Dates: start: 20130308, end: 20130416
  18. CONTRAMAL [Concomitant]
     Dates: start: 20130308, end: 20130423
  19. ACTRAPID [Concomitant]
     Dates: start: 20130308, end: 20130328
  20. LANTUS [Concomitant]
     Dates: start: 20130328, end: 20130423
  21. NOVORAPID [Concomitant]
     Dates: start: 20130328, end: 20130401
  22. RED BLOOD CELLS, CONCENTRATED [Concomitant]
     Indication: ANAEMIA
     Dates: start: 20130325, end: 20130326
  23. CORSODYL [Concomitant]
     Indication: ANAEMIA
     Dates: start: 20130311, end: 20130413
  24. LASIX [Concomitant]
     Indication: BRONCHOPNEUMONIA
  25. CORVATON [Concomitant]
     Indication: CORONARY ARTERY DISEASE
     Dates: start: 20130308, end: 20130318
  26. F2695 [Suspect]
     Indication: CEREBROVASCULAR ACCIDENT
     Dosage: 2 DF
     Route: 048
     Dates: start: 20130318, end: 20130414

REACTIONS (1)
  - Cardiac failure [Fatal]
